FAERS Safety Report 7276052-0 (Version None)
Quarter: 2011Q1

REPORT INFORMATION
  Report Type: 
  Country: None (occurrence: None)
  Receive Date: 20110204
  Receipt Date: 20110128
  Transmission Date: 20110831
  Serious: Yes (Death, Hospitalization)
  Sender: FDA-Public Use
  Company Number: B0698021A

PATIENT
  Sex: Female

DRUGS (14)
  1. MYCOSTATIN [Concomitant]
     Route: 048
     Dates: start: 20101015, end: 20101112
  2. LASIX [Concomitant]
  3. SINTROM [Concomitant]
     Dosage: 1MG PER DAY
     Route: 065
  4. AMOXICILLIN AND CLAVULANATE POTASSIUM [Suspect]
     Dosage: 2G PER DAY
     Route: 048
     Dates: start: 20101011, end: 20101015
  5. TAVANIC [Suspect]
     Indication: NEUTROPHILIA
     Dosage: 500MG PER DAY
     Route: 042
     Dates: start: 20101023, end: 20101109
  6. MEPRAL [Concomitant]
     Dosage: 40MG PER DAY
     Route: 048
  7. URBASON [Concomitant]
     Dosage: 20MG PER DAY
     Route: 065
  8. LANITOP [Concomitant]
     Route: 048
  9. TENACID [Suspect]
     Indication: COUGH
     Dosage: 2000MG PER DAY
     Route: 042
     Dates: start: 20101030, end: 20101109
  10. CIPROXIN [Suspect]
     Dosage: 500MG PER DAY
     Route: 048
     Dates: start: 20101019, end: 20101021
  11. TAREG [Concomitant]
     Dosage: 40MG PER DAY
     Route: 048
  12. MAALOX [Concomitant]
     Route: 048
  13. CEFTAZIDIME [Suspect]
     Indication: COUGH
     Dosage: 4G PER DAY
     Route: 042
     Dates: start: 20101021, end: 20101030
  14. ISOPTIN [Concomitant]
     Dosage: 40MG PER DAY
     Route: 048

REACTIONS (3)
  - DIARRHOEA [None]
  - CLOSTRIDIUM TEST POSITIVE [None]
  - DEATH [None]
